FAERS Safety Report 17441796 (Version 2)
Quarter: 2020Q1

REPORT INFORMATION
  Report Type: Spontaneous
  Country: NL (occurrence: NL)
  Receive Date: 20200220
  Receipt Date: 20200227
  Transmission Date: 20200409
  Serious: Yes (Death, Hospitalization)
  Sender: FDA-Public Use
  Company Number: NL-MYLANLABS-2020M1018840

PATIENT
  Age: 42 Year
  Sex: Female

DRUGS (4)
  1. DEXAMETHASONE                      /00016002/ [Suspect]
     Active Substance: DEXAMETHASONE SODIUM PHOSPHATE
     Indication: VULVAL CANCER METASTATIC
     Dosage: 8 MILLIGRAM, QD
     Route: 042
  2. DEXAMETHASONE                      /00016002/ [Suspect]
     Active Substance: DEXAMETHASONE SODIUM PHOSPHATE
     Dosage: 10 MILLIGRAM
     Route: 042
  3. CEFUROXIME. [Concomitant]
     Active Substance: CEFUROXIME
     Indication: PNEUMONIA
     Dosage: 1500 MG, TID
     Route: 065
  4. TOPOTECAN [Suspect]
     Active Substance: TOPOTECAN HYDROCHLORIDE
     Indication: VULVAL CANCER METASTATIC
     Dosage: UNK
     Route: 065

REACTIONS (12)
  - Malignant neoplasm progression [Unknown]
  - Dizziness [Fatal]
  - Vision blurred [Fatal]
  - Hydrocephalus [Fatal]
  - Nausea [Fatal]
  - Vulval cancer metastatic [Unknown]
  - Product use in unapproved indication [Unknown]
  - Dyspnoea [Fatal]
  - Central nervous system lesion [Fatal]
  - Brain compression [Fatal]
  - Metastases to central nervous system [Fatal]
  - Headache [Fatal]
